FAERS Safety Report 22172832 (Version 1)
Quarter: 2023Q2

REPORT INFORMATION
  Report Type: Spontaneous
  Country: US (occurrence: None)
  Receive Date: 20230403
  Receipt Date: 20230403
  Transmission Date: 20230721
  Serious: Yes (Other)
  Sender: FDA-Public Use
  Company Number: None

PATIENT
  Age: 36 Year
  Sex: Female
  Weight: 94.5 kg

DRUGS (1)
  1. METHYLPHENIDATE HYDROCHLORIDE [Suspect]
     Active Substance: METHYLPHENIDATE HYDROCHLORIDE
     Indication: Attention deficit hyperactivity disorder
     Dosage: 30 TABLETS OTHER  ORAL?
     Route: 048
     Dates: start: 20230313, end: 20230322

REACTIONS (6)
  - Mental disorder [None]
  - Irritability [None]
  - Emotional disorder [None]
  - Depression [None]
  - Loss of personal independence in daily activities [None]
  - Feeling abnormal [None]

NARRATIVE: CASE EVENT DATE: 20230322
